FAERS Safety Report 8424950-4 (Version None)
Quarter: 2012Q2

REPORT INFORMATION
  Report Type: 
  Country: None (occurrence: None)
  Receive Date: 20120611
  Receipt Date: 20120609
  Transmission Date: 20120825
  Serious: No
  Sender: FDA-Public Use
  Company Number: US-PFIZER INC-2012138853

PATIENT
  Sex: Female
  Weight: 65.76 kg

DRUGS (7)
  1. CEPHALEXIN [Concomitant]
     Indication: CYSTITIS
     Dosage: 250 MG, DAILY
  2. CELEBREX [Suspect]
     Route: 048
  3. ALENDRONATE SODIUM [Concomitant]
     Dosage: UNK
  4. HYDROCHLOROTHIAZIDE [Concomitant]
     Dosage: 25 MG, DAILY
  5. ESTRACE [Concomitant]
     Indication: CYSTITIS
     Dosage: UNK
  6. ASPIRIN [Concomitant]
     Dosage: 81 MG, UNK
  7. PRILOSEC [Concomitant]
     Dosage: 20 MG, DAILY

REACTIONS (1)
  - SKIN DISORDER [None]
